FAERS Safety Report 5163812-5 (Version None)
Quarter: 2006Q4

REPORT INFORMATION
  Report Type: 
  Country: None (occurrence: None)
  Receive Date: 20061124
  Receipt Date: 20061109
  Transmission Date: 20070319
  Serious: No
  Sender: FDA-Public Use
  Company Number: 2006138398

PATIENT
  Age: 50 Year

DRUGS (3)
  1. AMLODIPINE [Suspect]
  2. DIPHENHYDRAMINE HCL [Suspect]
  3. AMITRIPTYLINE HYDROCHLORIDE [Suspect]

REACTIONS (2)
  - COMPLETED SUICIDE [None]
  - THERAPEUTIC AGENT TOXICITY [None]
